FAERS Safety Report 21077586 (Version 2)
Quarter: 2022Q3

REPORT INFORMATION
  Report Type: Spontaneous
  Country: US (occurrence: US)
  Receive Date: 20220713
  Receipt Date: 20220715
  Transmission Date: 20221026
  Serious: No
  Sender: FDA-Public Use
  Company Number: US-PFIZER INC-202200951416

PATIENT
  Age: 72 Year
  Sex: Male
  Weight: 102.06 kg

DRUGS (1)
  1. PAXLOVID [Suspect]
     Active Substance: NIRMATRELVIR\RITONAVIR
     Indication: COVID-19 treatment
     Dosage: 2 DF, 2X/DAY (1 NIRMATRELVIR 300MG TAB AND 1 OF RITONAVIR 100MG TAB/2 TABS MORNING AND 2 AT NIGHT)
     Dates: start: 20220628, end: 20220703

REACTIONS (3)
  - Asymptomatic COVID-19 [Unknown]
  - Disease recurrence [Unknown]
  - Incorrect dose administered [Unknown]

NARRATIVE: CASE EVENT DATE: 20220628
